FAERS Safety Report 5269919-6 (Version None)
Quarter: 2007Q1

REPORT INFORMATION
  Report Type: 
  Country: None (occurrence: None)
  Receive Date: 20070314
  Receipt Date: 20070227
  Transmission Date: 20070707
  Serious: Yes (Hospitalization)
  Sender: FDA-Public Use
  Company Number: 2007000194

PATIENT
  Age: 76 Year
  Sex: Male
  Weight: 81 kg

DRUGS (11)
  1. ERLOTINIB (TABLET) [Suspect]
     Indication: NON-SMALL CELL LUNG CANCER
     Dosage: 150 MG (QD), ORAL
     Route: 048
     Dates: start: 20061212
  2. ERLOTINIB (TABLET) [Suspect]
  3. BEVACIZUMAB (INJECTION FOR INFUSION) [Suspect]
     Indication: NON-SMALL CELL LUNG CANCER
     Dosage: 1290 MG (Q3W), INTRAVENOUS
     Route: 042
     Dates: start: 20061212
  4. BEVACIZUMAB (INJEECTION FOR INFUSION) [Suspect]
  5. TOPROL-XL [Concomitant]
  6. LIPITOR [Concomitant]
  7. NIASPAN [Concomitant]
  8. NITROSTAT [Concomitant]
  9. ASPIRIN [Concomitant]
  10. ALLEGRA-D (ALLEGRA-D) [Concomitant]
  11. LOPERAMIDE HCL [Concomitant]

REACTIONS (2)
  - ILEUS [None]
  - SMALL INTESTINAL OBSTRUCTION [None]
